FAERS Safety Report 7064970-8 (Version None)
Quarter: 2010Q4

REPORT INFORMATION
  Report Type: 
  Country: None (occurrence: None)
  Receive Date: 20101027
  Receipt Date: 20020322
  Transmission Date: 20110411
  Serious: Yes (Congenital Anomaly)
  Sender: FDA-Public Use
  Company Number: CH-ROCHE-310005

PATIENT
  Sex: Male

DRUGS (1)
  1. FANSIDAR [Suspect]
     Route: 064
     Dates: start: 20020101, end: 20020301

REACTIONS (2)
  - BRAIN MALFORMATION [None]
  - CONGENITAL TOXOPLASMOSIS [None]
